FAERS Safety Report 23133479 (Version 2)
Quarter: 2023Q4

REPORT INFORMATION
  Report Type: Spontaneous
  Country: US (occurrence: US)
  Receive Date: 20231101
  Receipt Date: 20231109
  Transmission Date: 20240110
  Serious: Yes (Other)
  Sender: FDA-Public Use
  Company Number: US-UROGEN PHARMA LTD.-2023-UGN-000083

PATIENT

DRUGS (1)
  1. JELMYTO [Suspect]
     Active Substance: MITOMYCIN
     Indication: Malignant neoplasm of renal pelvis
     Dosage: 40 MILLIGRAM, ONCE A WEEK (VIA CYSTOSCOPY)
     Dates: start: 20231019, end: 20231019

REACTIONS (4)
  - Paralysis [Unknown]
  - Balance disorder [Unknown]
  - Diarrhoea [Unknown]
  - Off label use [Unknown]

NARRATIVE: CASE EVENT DATE: 20231019
